FAERS Safety Report 9203182 (Version 1)
Quarter: 2013Q1

REPORT INFORMATION
  Report Type: Spontaneous
  Country: GB (occurrence: None)
  Receive Date: 20130328
  Receipt Date: 20130328
  Transmission Date: 20140127
  Serious: Yes (Other)
  Sender: FDA-Public Use
  Company Number: 2013-04952

PATIENT
  Age: 9 Year
  Sex: Male

DRUGS (1)
  1. SALBUTAMOL [Suspect]
     Indication: ACCIDENTAL EXPOSURE TO PRODUCT
     Route: 003

REACTIONS (4)
  - Application site burn [None]
  - Accidental exposure to product [None]
  - Incorrect route of drug administration [None]
  - Skin exfoliation [None]
